FAERS Safety Report 7367367-6 (Version None)
Quarter: 2011Q1

REPORT INFORMATION
  Report Type: 
  Country: None (occurrence: None)
  Receive Date: 20110322
  Receipt Date: 20110316
  Transmission Date: 20110831
  Serious: Yes (Death, Hospitalization, Other)
  Sender: FDA-Public Use
  Company Number: US-BRISTOL-MYERS SQUIBB COMPANY-15612138

PATIENT
  Age: 53 Year
  Sex: Male

DRUGS (4)
  1. PROZAC [Suspect]
     Indication: DEPRESSION
     Dosage: FOR YEARS
  2. MULTIVITAMIN [Concomitant]
  3. ABILIFY [Suspect]
     Indication: DEPRESSION
     Dates: start: 20090101
  4. METOPROLOL [Concomitant]

REACTIONS (6)
  - FALL [None]
  - ASPIRATION [None]
  - PNEUMONIA [None]
  - MALNUTRITION [None]
  - DYSPHAGIA [None]
  - HIP FRACTURE [None]
